FAERS Safety Report 6665216-2 (Version None)
Quarter: 2010Q1

REPORT INFORMATION
  Report Type: 
  Country: None (occurrence: None)
  Receive Date: 20100330
  Receipt Date: 20100318
  Transmission Date: 20100710
  Serious: Yes (Hospitalization)
  Sender: FDA-Public Use
  Company Number: 230512J10BRA

PATIENT
  Age: 33 Year
  Sex: Female

DRUGS (4)
  1. REBIF [Suspect]
     Indication: MULTIPLE SCLEROSIS
     Dosage: 44 MCG, 3 IN 1 WEEKS
     Dates: start: 20050509
  2. MANTIDAN (AMANTADINE HYDROCHLORIDE) [Concomitant]
  3. TRILEPTAL (OXCRABAZEPINE) [Concomitant]
  4. TOPAMAX [Concomitant]

REACTIONS (4)
  - DUODENITIS [None]
  - HELICOBACTER GASTRITIS [None]
  - INFLUENZA [None]
  - LIVER DISORDER [None]
